FAERS Safety Report 9168711 (Version 1)
Quarter: 2013Q1

REPORT INFORMATION
  Report Type: Spontaneous
  Country: US (occurrence: US)
  Receive Date: 20130318
  Receipt Date: 20130318
  Transmission Date: 20140127
  Serious: No
  Sender: FDA-Public Use
  Company Number: US-ASTRAZENECA-2013SE15220

PATIENT
  Sex: Male

DRUGS (2)
  1. SEROQUEL XR [Suspect]
     Indication: SCHIZOAFFECTIVE DISORDER
     Route: 048
  2. DEPAKOTE [Concomitant]

REACTIONS (2)
  - Weight increased [Unknown]
  - Off label use [Unknown]
